FAERS Safety Report 9284141 (Version 1)
Quarter: 2013Q2

REPORT INFORMATION
  Report Type: Spontaneous
  Country: GB (occurrence: GB)
  Receive Date: 20130510
  Receipt Date: 20130510
  Transmission Date: 20140414
  Serious: Yes (Other)
  Sender: FDA-Public Use
  Company Number: GB-JNJFOC-20130405344

PATIENT
  Age: 53 Year
  Sex: Male

DRUGS (5)
  1. XARELTO [Suspect]
     Indication: THROMBOSIS PROPHYLAXIS
     Route: 048
     Dates: start: 20130116, end: 20130125
  2. XARELTO [Suspect]
     Indication: EMBOLISM VENOUS
     Route: 048
     Dates: start: 20130116, end: 20130125
  3. RANITIDINE [Concomitant]
     Route: 065
  4. ENALAPRIL [Concomitant]
     Route: 065
  5. AMLODIPINE [Concomitant]
     Route: 065

REACTIONS (2)
  - Deep vein thrombosis [Recovered/Resolved]
  - Drug ineffective [Recovered/Resolved]
